FAERS Safety Report 19243150 (Version 2)
Quarter: 2021Q2

REPORT INFORMATION
  Report Type: Spontaneous
  Country: FR (occurrence: FR)
  Receive Date: 20210511
  Receipt Date: 20210528
  Transmission Date: 20210717
  Serious: Yes (Hospitalization, Other)
  Sender: FDA-Public Use
  Company Number: FR-PFIZER INC-2021484554

PATIENT
  Age: 61 Year
  Sex: Male

DRUGS (7)
  1. ATORVASTATIN CALCIUM. [Suspect]
     Active Substance: ATORVASTATIN CALCIUM
     Indication: ACUTE CORONARY SYNDROME
     Dosage: 80 MG, 1X/DAY
     Route: 048
     Dates: start: 20210309, end: 20210407
  2. VISIPAQUE [Suspect]
     Active Substance: IODIXANOL
     Dosage: UNK
     Route: 042
     Dates: start: 20210317, end: 20210317
  3. VISIPAQUE [Suspect]
     Active Substance: IODIXANOL
     Indication: ANGIOGRAM
     Dosage: UNK
     Route: 042
     Dates: start: 20210309, end: 20210309
  4. TICAGRELOR. [Concomitant]
     Active Substance: TICAGRELOR
     Indication: ACUTE CORONARY SYNDROME
     Dosage: 180 MG, 1X/DAY
     Route: 048
     Dates: start: 20210309
  5. CARVEDILOL. [Concomitant]
     Active Substance: CARVEDILOL
     Indication: ACUTE CORONARY SYNDROME
     Dosage: 0.5 DF, 2X/DAY (MORNING AND EVENING)
     Route: 048
     Dates: start: 20210309
  6. KARDEGIC [Concomitant]
     Active Substance: ASPIRIN DL-LYSINE
     Indication: ACUTE CORONARY SYNDROME
     Dosage: 1 DF, 1X/DAY
     Route: 048
     Dates: start: 20210309
  7. LANSOPRAZOLE. [Concomitant]
     Active Substance: LANSOPRAZOLE
     Dosage: 15 MG, 1X/DAY
     Route: 048
     Dates: start: 20210309

REACTIONS (3)
  - Rash [Recovered/Resolved]
  - Eosinophilia [Recovered/Resolved]
  - Hepatic cytolysis [Recovering/Resolving]

NARRATIVE: CASE EVENT DATE: 20210318
